FAERS Safety Report 9329756 (Version 2)
Quarter: 2013Q2

REPORT INFORMATION
  Report Type: Spontaneous
  Country: US (occurrence: US)
  Receive Date: 20130604
  Receipt Date: 20130626
  Transmission Date: 20140414
  Serious: Yes (Death)
  Sender: FDA-Public Use
  Company Number: US-GILEAD-2013-0076322

PATIENT
  Sex: Male

DRUGS (2)
  1. LETAIRIS [Suspect]
     Indication: KYPHOSCOLIOTIC HEART DISEASE
     Route: 048
     Dates: start: 20120606
  2. LETAIRIS [Suspect]
     Indication: PORTAL HYPERTENSION

REACTIONS (1)
  - Death [Fatal]
